FAERS Safety Report 6624868-3 (Version None)
Quarter: 2010Q1

REPORT INFORMATION
  Report Type: 
  Country: None (occurrence: None)
  Receive Date: 20100310
  Receipt Date: 20100226
  Transmission Date: 20100710
  Serious: Yes (Other)
  Sender: FDA-Public Use
  Company Number: BR-JNJCH-2010005420

PATIENT
  Sex: Male
  Weight: 70 kg

DRUGS (3)
  1. COOL MINT LISTERINE [Suspect]
     Indication: ACCIDENTAL EXPOSURE
     Dosage: TEXT:LITTLE QUANTITY (A FLASK CAPFUL)
     Route: 048
  2. DAONIL [Concomitant]
     Indication: DIABETES MELLITUS
     Dosage: TEXT:ONE TABLET PER DAY
     Route: 048
  3. HYGROTON [Concomitant]
     Indication: HYPERTENSION
     Dosage: TEXT:ONE TABLET PER DAY
     Route: 048

REACTIONS (2)
  - ACCIDENTAL EXPOSURE [None]
  - CONFUSIONAL STATE [None]
